FAERS Safety Report 4364306-7 (Version None)
Quarter: 2004Q2

REPORT INFORMATION
  Report Type: 
  Country: None (occurrence: None)
  Receive Date: 20040519
  Receipt Date: 20040507
  Transmission Date: 20050107
  Serious: Yes (Hospitalization)
  Sender: FDA-Public Use
  Company Number: 040513-0000352

PATIENT
  Age: 44 Year
  Sex: Female

DRUGS (1)
  1. METHAMPHETAMINE HCL [Suspect]
     Indication: DRUG ABUSER
     Dosage: BIW; INH
     Route: 055

REACTIONS (9)
  - ACUTE CORONARY SYNDROME [None]
  - BLOOD PRESSURE INCREASED [None]
  - CHEST PAIN [None]
  - DRUG ABUSER [None]
  - DRUG SCREEN POSITIVE [None]
  - DYSPNOEA [None]
  - ELECTROCARDIOGRAM ST SEGMENT DEPRESSION [None]
  - ELECTROCARDIOGRAM T WAVE INVERSION [None]
  - HEART RATE INCREASED [None]
